FAERS Safety Report 15378221 (Version 2)
Quarter: 2018Q4

REPORT INFORMATION
  Report Type: Spontaneous
  Country: JP (occurrence: JP)
  Receive Date: 20180913
  Receipt Date: 20181003
  Transmission Date: 20190204
  Serious: Yes (Other)
  Sender: FDA-Public Use
  Company Number: JP-PFIZER INC-2018364414

PATIENT
  Age: 66 Year
  Sex: Male

DRUGS (5)
  1. CYCLOSPORIN [Suspect]
     Active Substance: CYCLOSPORINE
     Dosage: 100 MG, DAILY
     Route: 048
  2. METHYLPREDNISOLONE. [Suspect]
     Active Substance: METHYLPREDNISOLONE
     Dosage: 4 MG, DAILY
  3. FAMOTIDINE. [Suspect]
     Active Substance: FAMOTIDINE
     Dosage: 40 MG, DAILY
  4. ENTECAVIR MONOHYDRATE [Suspect]
     Active Substance: ENTECAVIR
     Dosage: 0.5 MG, DAILY
  5. MESALAZINE [Suspect]
     Active Substance: MESALAMINE
     Dosage: 3600 MG, DAILY

REACTIONS (1)
  - Pulmonary artery thrombosis [Unknown]
